FAERS Safety Report 6810754-2 (Version None)
Quarter: 2010Q2

REPORT INFORMATION
  Report Type: 
  Country: None (occurrence: None)
  Receive Date: 20100630
  Receipt Date: 20071128
  Transmission Date: 20101027
  Serious: No
  Sender: FDA-Public Use
  Company Number: US-PFIZER INC-2007088584

PATIENT
  Sex: Female
  Weight: 55.34 kg

DRUGS (4)
  1. ESTRING [Suspect]
     Indication: VULVOVAGINAL DRYNESS
     Dates: start: 20050101
  2. DETROL LA [Concomitant]
     Indication: URINARY INCONTINENCE
  3. FIORICET [Concomitant]
  4. DITROPAN XL [Concomitant]

REACTIONS (3)
  - DISCOMFORT [None]
  - DRUG INEFFECTIVE [None]
  - HEADACHE [None]
